FAERS Safety Report 20021842 (Version 2)
Quarter: 2021Q4

REPORT INFORMATION
  Report Type: Other
  Country: US (occurrence: None)
  Receive Date: 20211101
  Receipt Date: 20211115
  Transmission Date: 20220303
  Serious: Yes (Death)
  Sender: FDA-Public Use
  Company Number: US-ROCHE-2947384

PATIENT
  Age: 70 Year
  Sex: Female

DRUGS (4)
  1. XELODA [Suspect]
     Active Substance: CAPECITABINE
     Indication: Metastases to bone
     Dosage: TAKE 3 TABLET(S) BY MOUTH TWICE A DAY FOR 14 DAYS FOLLOWED BY 7 DAYS?REST PERIOD
     Route: 048
     Dates: start: 20211008
  2. XELODA [Suspect]
     Active Substance: CAPECITABINE
     Indication: Breast cancer metastatic
  3. XELODA [Suspect]
     Active Substance: CAPECITABINE
     Indication: Breast cancer female
  4. XELODA [Suspect]
     Active Substance: CAPECITABINE
     Indication: Metastases to bone

REACTIONS (1)
  - Death [Fatal]

NARRATIVE: CASE EVENT DATE: 20211022
